FAERS Safety Report 15651959 (Version 3)
Quarter: 2018Q4

REPORT INFORMATION
  Report Type: Spontaneous
  Country: PL (occurrence: PL)
  Receive Date: 20181123
  Receipt Date: 20181218
  Transmission Date: 20190205
  Serious: Yes (Other)
  Sender: FDA-Public Use
  Company Number: PL-PFIZER INC-2018475560

PATIENT
  Age: 70 Year
  Sex: Female

DRUGS (7)
  1. ENARENAL [Concomitant]
     Active Substance: ENALAPRIL
     Dosage: UNK
  2. ENARENAL [Concomitant]
     Active Substance: ENALAPRIL
     Dosage: UNK
     Dates: start: 20181115
  3. NITRENDIPINE [Concomitant]
     Active Substance: NITRENDIPINE
     Dosage: UNK
  4. TRITACE [Concomitant]
     Active Substance: RAMIPRIL
     Dosage: UNK
  5. POTASSIUM [Concomitant]
     Active Substance: POTASSIUM
     Dosage: UNK
  6. IPOREL [Concomitant]
     Active Substance: CLONIDINE
     Dosage: UNK
  7. CARDURA XL [Suspect]
     Active Substance: DOXAZOSIN MESYLATE
     Indication: HYPERTENSION
     Dosage: 4 MG, 1X/DAY
     Dates: start: 2017, end: 20181114

REACTIONS (8)
  - Dysuria [Recovered/Resolved]
  - Gait disturbance [Recovered/Resolved]
  - Immunodeficiency [Recovered/Resolved]
  - Hot flush [Recovered/Resolved]
  - Respiratory tract infection [Recovered/Resolved]
  - Infection [Recovered/Resolved]
  - Alopecia areata [Recovered/Resolved]
  - Urinary tract infection [Recovered/Resolved]

NARRATIVE: CASE EVENT DATE: 20181115
